FAERS Safety Report 7729038-3 (Version None)
Quarter: 2011Q3

REPORT INFORMATION
  Report Type: 
  Country: None (occurrence: None)
  Receive Date: 20110906
  Receipt Date: 20110901
  Transmission Date: 20111222
  Serious: Yes (Death, Hospitalization)
  Sender: FDA-Public Use
  Company Number: US-BRISTOL-MYERS SQUIBB COMPANY-15948565

PATIENT
  Age: 70 Year
  Sex: Male

DRUGS (14)
  1. METOCLOPRAMIDE [Concomitant]
  2. FLUCONAZOLE [Concomitant]
  3. DUONEB [Concomitant]
  4. DORIPENEM MONOHYDRATE [Concomitant]
  5. HYDROCORTISONE [Concomitant]
  6. INSULIN [Concomitant]
     Route: 058
  7. CHLORHEXIDINE GLUCONATE [Concomitant]
  8. YERVOY [Suspect]
     Indication: METASTATIC MALIGNANT MELANOMA
     Dosage: 17JUN11-200MG,8JUL11-187MG IN 250MG NS.
     Route: 042
     Dates: start: 20110617
  9. ONDANSETRON [Concomitant]
  10. FENTANYL-100 [Concomitant]
  11. ELECTROLYTES [Concomitant]
  12. SIMVASTATIN [Concomitant]
  13. ACETAMINOPHEN [Concomitant]
  14. PANTOPRAZOLE [Concomitant]

REACTIONS (12)
  - RENAL FAILURE ACUTE [None]
  - NEOPLASM MALIGNANT [None]
  - HYPOVOLAEMIC SHOCK [None]
  - ATELECTASIS [None]
  - HYPERGLYCAEMIA [None]
  - INTESTINAL PERFORATION [None]
  - MULTI-ORGAN FAILURE [None]
  - FAECES DISCOLOURED [None]
  - CONSTIPATION [None]
  - PNEUMOPERITONEUM [None]
  - HYPOTENSION [None]
  - ANAEMIA [None]
